FAERS Safety Report 9823348 (Version 2)
Quarter: 2014Q1

REPORT INFORMATION
  Report Type: Spontaneous
  Country: US (occurrence: US)
  Receive Date: 20140116
  Receipt Date: 20140116
  Transmission Date: 20141002
  Serious: Yes (Hospitalization)
  Sender: FDA-Public Use
  Company Number: US-GILEAD-2010-0034602

PATIENT
  Age: 56 Year
  Sex: Female
  Weight: 86.18 kg

DRUGS (7)
  1. LETAIRIS [Suspect]
     Indication: PRODUCT USED FOR UNKNOWN INDICATION
     Route: 048
     Dates: start: 20080222
  2. SPIRIVA [Concomitant]
  3. ADVAIR [Concomitant]
  4. PREDNISONE [Concomitant]
  5. PREVACID [Concomitant]
  6. MOTRIN [Concomitant]
  7. SYNTHROID [Concomitant]

REACTIONS (1)
  - Dyspnoea [Recovered/Resolved]
